FAERS Safety Report 8299905 (Version 2)
Quarter: 2012Q4

REPORT INFORMATION
  Report Type: 
  Country: US (occurrence: US)
  Receive Date: 20111219
  Receipt Date: 20121026
  Transmission Date: 20130627
  Serious: No
  Sender: FDA-Public Use
  Company Number: US-ASTRAZENECA-2011SE51526

PATIENT
  Age: 58 Year
  Sex: Female

DRUGS (1)
  1. CRESTOR [Suspect]
     Route: 048

REACTIONS (4)
  - Malaise [Unknown]
  - Asthma [Unknown]
  - Nasopharyngitis [Unknown]
  - Malaise [Unknown]
